FAERS Safety Report 8163153-8 (Version None)
Quarter: 2012Q1

REPORT INFORMATION
  Report Type: 
  Country: None (occurrence: None)
  Receive Date: 20120224
  Receipt Date: 20110328
  Transmission Date: 20120608
  Serious: No
  Sender: FDA-Public Use
  Company Number: US-PFIZER INC-K201100344

PATIENT
  Age: 67 Year
  Sex: Female
  Weight: 88.889 kg

DRUGS (1)
  1. FLECTOR [Suspect]
     Indication: EXOSTOSIS
     Dosage: 2 PATCH, SINGLE
     Route: 061
     Dates: start: 20110225, end: 20110225

REACTIONS (6)
  - APPLICATION SITE SWELLING [None]
  - FEELING JITTERY [None]
  - APPLICATION SITE RASH [None]
  - HYPERSENSITIVITY [None]
  - APPLICATION SITE URTICARIA [None]
  - APPLICATION SITE PRURITUS [None]
